FAERS Safety Report 24889689 (Version 1)
Quarter: 2025Q1

REPORT INFORMATION
  Report Type: Spontaneous
  Country: PT (occurrence: PT)
  Receive Date: 20250127
  Receipt Date: 20250127
  Transmission Date: 20250409
  Serious: Yes (Other)
  Sender: TEVA
  Company Number: None

PATIENT
  Age: 17 Year
  Sex: Male

DRUGS (1)
  1. AMOXICILLIN\CLAVULANIC ACID [Suspect]
     Active Substance: AMOXICILLIN\CLAVULANIC ACID
     Indication: Tonsillitis
     Route: 048
     Dates: start: 20170315

REACTIONS (5)
  - Rash pruritic [Recovered/Resolved]
  - Localised oedema [Recovered/Resolved]
  - Rash maculo-papular [Recovered/Resolved]
  - Localised oedema [Recovered/Resolved]
  - Angioedema [Recovered/Resolved]

NARRATIVE: CASE EVENT DATE: 20170315
